FAERS Safety Report 16299144 (Version 1)
Quarter: 2019Q2

REPORT INFORMATION
  Report Type: Spontaneous
  Country: SE (occurrence: SE)
  Receive Date: 20190510
  Receipt Date: 20190510
  Transmission Date: 20190711
  Serious: Yes (Hospitalization)
  Sender: FDA-Public Use
  Company Number: SE-ACCORD-126905

PATIENT
  Age: 69 Year
  Sex: Female

DRUGS (9)
  1. OMEPRAZOLE. [Concomitant]
     Active Substance: OMEPRAZOLE
  2. CAPECITABINE. [Concomitant]
     Active Substance: CAPECITABINE
  3. OXASCAND [Concomitant]
     Active Substance: OXAZEPAM
  4. OXALIPLATIN. [Suspect]
     Active Substance: OXALIPLATIN
     Indication: RECTAL ADENOCARCINOMA
     Route: 042
     Dates: start: 20190121, end: 20190121
  5. VAGIFEM [Concomitant]
     Active Substance: ESTRADIOL
  6. ARTROX [Concomitant]
     Active Substance: GLUCOSAMINE
  7. LEVAXIN [Concomitant]
     Active Substance: LEVOTHYROXINE SODIUM
  8. INOLAXOL [Concomitant]
     Active Substance: HERBALS\KARAYA GUM
  9. PANODIL [Concomitant]
     Active Substance: ACETAMINOPHEN

REACTIONS (2)
  - Dyspnoea [Recovered/Resolved]
  - Chest discomfort [Recovered/Resolved]

NARRATIVE: CASE EVENT DATE: 20190121
